FAERS Safety Report 11532958 (Version 1)
Quarter: 2015Q3

REPORT INFORMATION
  Report Type: Spontaneous
  Country: US (occurrence: US)
  Receive Date: 20150921
  Receipt Date: 20150921
  Transmission Date: 20151125
  Serious: Yes (Other)
  Sender: FDA-Public Use
  Company Number: US-ASTRAZENECA-2015SE88772

PATIENT
  Age: 92 Year
  Sex: Male

DRUGS (3)
  1. CARBAMAZEPINE. [Suspect]
     Active Substance: CARBAMAZEPINE
     Dosage: 200 MG 3XDAY, TARO PHARMACEUTICALS (NON-AZ PRODUCT)
     Route: 065
  2. CARBAMAZEPINE. [Suspect]
     Active Substance: CARBAMAZEPINE
     Dosage: 100 MG 3XDAY BY TEVA (NON-AZ PRODUCT)
     Route: 065
     Dates: start: 20150620
  3. SEROQUEL [Suspect]
     Active Substance: QUETIAPINE FUMARATE
     Route: 048

REACTIONS (7)
  - Activities of daily living impaired [Recovered/Resolved]
  - Intentional product misuse [Unknown]
  - Urinary incontinence [Unknown]
  - Feeling abnormal [Unknown]
  - Hallucination [Unknown]
  - Speech disorder [Recovered/Resolved]
  - Dementia Alzheimer^s type [Unknown]
